FAERS Safety Report 7142351-6 (Version None)
Quarter: 2010Q4

REPORT INFORMATION
  Report Type: 
  Country: None (occurrence: None)
  Receive Date: 20101207
  Receipt Date: 20101126
  Transmission Date: 20110411
  Serious: Yes (Hospitalization)
  Sender: FDA-Public Use
  Company Number: JP-AMGEN-KDC434267

PATIENT

DRUGS (23)
  1. PANITUMUMAB [Suspect]
     Dosage: 6 MG/KG, Q2WK
     Route: 041
     Dates: start: 20100802, end: 20100817
  2. OXALIPLATIN [Suspect]
     Indication: COLORECTAL CANCER
     Route: 041
     Dates: start: 20100803, end: 20100817
  3. FLUOROURACIL [Concomitant]
     Indication: COLORECTAL CANCER
     Dosage: UNK UNK, UNK
     Route: 040
     Dates: start: 20100802
  4. FLUOROURACIL [Concomitant]
     Dosage: UNK UNK, UNK
     Route: 041
     Dates: start: 20100802
  5. FLUOROURACIL [Concomitant]
     Route: 040
     Dates: start: 20100803, end: 20100817
  6. FLUOROURACIL [Concomitant]
     Route: 041
     Dates: start: 20100803, end: 20100817
  7. CALCIUM LEVOFOLINATE [Concomitant]
     Dosage: UNK UNK, UNK
     Route: 041
     Dates: start: 20100802
  8. CALCIUM LEVOFOLINATE [Concomitant]
     Route: 041
     Dates: start: 20100803, end: 20100817
  9. LANSOPRAZOLE [Concomitant]
     Route: 048
  10. CORTICOSTEROIDS [Concomitant]
     Indication: PROPHYLAXIS
     Route: 065
  11. GRANISETRON HCL [Concomitant]
     Route: 042
  12. KYTRIL [Concomitant]
     Route: 048
  13. PENTAZOCINE LACTATE [Concomitant]
     Route: 042
  14. PRIMPERAN [Concomitant]
     Route: 042
  15. PYDOXAL [Concomitant]
     Route: 048
  16. DECADRON [Concomitant]
     Route: 042
  17. HIRUDOID SOFT OINTMENT [Concomitant]
     Route: 062
  18. MINOCYCLINE HYDROCHLORIDE [Concomitant]
     Route: 048
  19. MAGMITT [Concomitant]
     Route: 048
  20. PURSENNID [Concomitant]
     Route: 048
  21. TELEMINSOFT [Concomitant]
     Route: 054
  22. POSTERISAN OINTMENT [Concomitant]
     Route: 062
  23. HYPEN [Concomitant]
     Route: 048

REACTIONS (6)
  - ABDOMINAL PAIN LOWER [None]
  - DERMATITIS ACNEIFORM [None]
  - LOWER GASTROINTESTINAL HAEMORRHAGE [None]
  - PAIN IN EXTREMITY [None]
  - PRURITUS [None]
  - STOMATITIS [None]
